FAERS Safety Report 21711829 (Version 2)
Quarter: 2024Q1

REPORT INFORMATION
  Report Type: Report from Study
  Country: US (occurrence: US)
  Receive Date: 20221212
  Receipt Date: 20240130
  Transmission Date: 20240410
  Serious: Yes (Hospitalization)
  Sender: FDA-Public Use
  Company Number: US-TAKEDA-2020TUS056349

PATIENT
  Sex: Male

DRUGS (1)
  1. VEDOLIZUMAB [Suspect]
     Active Substance: VEDOLIZUMAB
     Indication: Colitis ulcerative
     Dosage: 300 MILLIGRAM
     Route: 042

REACTIONS (6)
  - Hospitalisation [Unknown]
  - Defaecation urgency [Unknown]
  - Weight decreased [Unknown]
  - Drug effect less than expected [Unknown]
  - Memory impairment [Unknown]
  - Frequent bowel movements [Unknown]
